FAERS Safety Report 24378870 (Version 2)
Quarter: 2024Q4

REPORT INFORMATION
  Report Type: Spontaneous
  Country: DE (occurrence: DE)
  Receive Date: 20240930
  Receipt Date: 20241025
  Transmission Date: 20250114
  Serious: Yes (Death, Life-Threatening, Hospitalization, Other)
  Sender: MERCK
  Company Number: DE-DCGMA-24203913

PATIENT
  Age: 69 Year
  Sex: Female

DRUGS (5)
  1. KEYTRUDA [Suspect]
     Active Substance: PEMBROLIZUMAB
     Indication: Neoplasm malignant
     Dosage: 200 MG D1, Q3W. 4 DOSES
     Route: 043
  2. FERRIC OXIDE RED [Concomitant]
     Active Substance: FERRIC OXIDE RED
     Indication: Preoperative care
     Dosage: INTRAMAMMARY IRON OXIDE INJECTION
     Route: 063
  3. PACLITAXEL [Concomitant]
     Active Substance: PACLITAXEL
     Indication: Triple negative breast cancer
     Dosage: D1 D8 D 15, Q3W. 4 CYCLES 12 DOSES
     Route: 042
  4. CARBOPLATIN [Concomitant]
     Active Substance: CARBOPLATIN
     Indication: Triple negative breast cancer
     Dosage: D1 Q3W. 4 DOSES
     Route: 042
  5. CARBOPLATIN [Concomitant]
     Active Substance: CARBOPLATIN
     Dosage: D1 Q3W. 4 DOSES
     Route: 042

REACTIONS (8)
  - Death [Fatal]
  - Cardiac arrest [Not Recovered/Not Resolved]
  - Resuscitation [Not Recovered/Not Resolved]
  - Hypophysitis [Not Recovered/Not Resolved]
  - Respiratory failure [Not Recovered/Not Resolved]
  - Glucocorticoid deficiency [Not Recovered/Not Resolved]
  - Adrenal insufficiency [Not Recovered/Not Resolved]
  - Left ventricular failure [Not Recovered/Not Resolved]

NARRATIVE: CASE EVENT DATE: 20240724
